FAERS Safety Report 6936638-7 (Version None)
Quarter: 2010Q3

REPORT INFORMATION
  Report Type: 
  Country: None (occurrence: None)
  Receive Date: 20100823
  Receipt Date: 20100811
  Transmission Date: 20110219
  Serious: No
  Sender: FDA-Public Use
  Company Number: US-JNJFOC-20100500451

PATIENT
  Sex: Female
  Weight: 45.36 kg

DRUGS (7)
  1. DURAGESIC-100 [Suspect]
     Indication: PAIN
     Route: 062
     Dates: start: 20000101, end: 20100101
  2. DURAGESIC-100 [Suspect]
     Route: 062
     Dates: start: 20100101
  3. PERCOCET [Concomitant]
     Indication: BREAKTHROUGH PAIN
     Dosage: 10/325 MG  FOUR TIMES A DAY AS NEEDED
     Route: 048
     Dates: start: 19950101
  4. SOMA [Concomitant]
     Indication: MUSCLE RELAXANT THERAPY
     Route: 048
     Dates: start: 19950101
  5. XANAX [Concomitant]
     Indication: PANIC ATTACK
     Route: 048
     Dates: start: 19980101
  6. ADDERALL 10 [Concomitant]
     Indication: ATTENTION DEFICIT/HYPERACTIVITY DISORDER
     Route: 048
     Dates: start: 20050101
  7. ELAVIL [Concomitant]
     Indication: HYPERSOMNIA
     Route: 048
     Dates: start: 20000101

REACTIONS (5)
  - ACNE [None]
  - FEELING COLD [None]
  - FEELING HOT [None]
  - THERAPEUTIC RESPONSE DECREASED [None]
  - WRONG TECHNIQUE IN DRUG USAGE PROCESS [None]
